FAERS Safety Report 25343853 (Version 3)
Quarter: 2025Q4

REPORT INFORMATION
  Report Type: Spontaneous
  Country: US (occurrence: US)
  Receive Date: 20250521
  Receipt Date: 20251007
  Transmission Date: 20260118
  Serious: No
  Sender: SANOFI AVENTIS
  Company Number: US-SA-2025SA143494

PATIENT
  Sex: Female
  Weight: 97.73 kg

DRUGS (20)
  1. DUPIXENT [Suspect]
     Active Substance: DUPILUMAB
     Indication: Dermatitis atopic
     Dosage: 300 MG, 1X
     Route: 058
  2. DUPIXENT [Suspect]
     Active Substance: DUPILUMAB
     Dosage: 300 MG, QOW
     Route: 058
     Dates: end: 202507
  3. JARDIANCE [Concomitant]
     Active Substance: EMPAGLIFLOZIN
     Dosage: UNK
  4. METOLAZONE [Concomitant]
     Active Substance: METOLAZONE
     Dosage: UNK
  5. POTASSIUM CHLORIDE [Concomitant]
     Active Substance: POTASSIUM CHLORIDE
     Dosage: UNK
  6. ELIQUIS [Concomitant]
     Active Substance: APIXABAN
     Dosage: UNK
  7. TRELEGY ELLIPTA [Concomitant]
     Active Substance: FLUTICASONE FUROATE\UMECLIDINIUM BROMIDE\VILANTEROL TRIFENATATE
     Dosage: UNK
  8. GABAPENTIN [Concomitant]
     Active Substance: GABAPENTIN
  9. TACROLIMUS [Concomitant]
     Active Substance: TACROLIMUS
     Dosage: UNK
  10. ALPRAZOLAM [Concomitant]
     Active Substance: ALPRAZOLAM
     Dosage: UNK
  11. SERTRALINE [Concomitant]
     Active Substance: SERTRALINE HYDROCHLORIDE
     Dosage: UNK
  12. PERMETHRIN [Concomitant]
     Active Substance: PERMETHRIN
     Dosage: UNK
  13. PREGABALIN [Concomitant]
     Active Substance: PREGABALIN
     Dosage: UNK
  14. SPIRONOLACTONE [Concomitant]
     Active Substance: SPIRONOLACTONE
     Dosage: UNK
  15. VITAMINS NOS [Concomitant]
     Active Substance: VITAMINS
  16. VITAMIN D NOS [Concomitant]
     Active Substance: CHOLECALCIFEROL\ERGOCALCIFEROL
  17. CALCIUM [Concomitant]
     Active Substance: CALCIUM
  18. SERTRALINE HYDROCHLORIDE [Concomitant]
     Active Substance: SERTRALINE HYDROCHLORIDE
  19. CARVEDILOL [Concomitant]
     Active Substance: CARVEDILOL
  20. LASIX [Concomitant]
     Active Substance: FUROSEMIDE

REACTIONS (13)
  - Blood potassium decreased [Unknown]
  - Renal disorder [Unknown]
  - Skin haemorrhage [Not Recovered/Not Resolved]
  - Eye pain [Recovered/Resolved]
  - Hordeolum [Unknown]
  - Pruritus [Not Recovered/Not Resolved]
  - Dermatitis atopic [Unknown]
  - Rebound effect [Unknown]
  - Product dose omission issue [Unknown]
  - Scratch [Unknown]
  - Feeling abnormal [Unknown]
  - Therapeutic response decreased [Unknown]
  - Incorrect dose administered [Unknown]
